FAERS Safety Report 26192087 (Version 1)
Quarter: 2025Q4

REPORT INFORMATION
  Report Type: Report from Study
  Country: CO (occurrence: CO)
  Receive Date: 20251223
  Receipt Date: 20251223
  Transmission Date: 20260118
  Serious: No
  Sender: PFIZER
  Company Number: CO-PFIZER INC-PV202500146217

PATIENT
  Sex: Female

DRUGS (1)
  1. GENOTROPIN [Suspect]
     Active Substance: SOMATROPIN
     Dosage: 1.0 MG, DAILY

REACTIONS (2)
  - Device use error [Unknown]
  - Drug dose omission by device [Unknown]
